FAERS Safety Report 7706930-7 (Version None)
Quarter: 2011Q3

REPORT INFORMATION
  Report Type: 
  Country: None (occurrence: None)
  Receive Date: 20110824
  Receipt Date: 20110819
  Transmission Date: 20111222
  Serious: Yes (Disabling)
  Sender: FDA-Public Use
  Company Number: JP-GLAXOSMITHKLINE-B0736159A

PATIENT
  Sex: Female

DRUGS (4)
  1. INVEGA [Concomitant]
     Indication: BIPOLAR DISORDER
     Dosage: 9MG PER DAY
     Route: 048
  2. LAMICTAL [Suspect]
     Indication: BIPOLAR DISORDER
     Dosage: 25MG PER DAY
     Route: 048
     Dates: start: 20110716, end: 20110727
  3. LITHIUM CARBONATE [Concomitant]
     Indication: BIPOLAR DISORDER
     Dosage: 1600MG PER DAY
     Route: 048
  4. TASMOLIN [Concomitant]
     Dosage: 18MG PER DAY
     Route: 048

REACTIONS (3)
  - ERYTHEMA [None]
  - ECZEMA [None]
  - CONJUNCTIVAL HYPERAEMIA [None]
